FAERS Safety Report 9304905 (Version 1)
Quarter: 2013Q1

REPORT INFORMATION
  Report Type: Spontaneous
  Country: US (occurrence: None)
  Receive Date: 20130221
  Receipt Date: 20130221
  Transmission Date: 20140127
  Serious: Yes (Congenital Anomaly)
  Sender: FDA-Public Use
  Company Number: ADR-UNK,  5035-082

PATIENT
  Age: 280 Day
  Sex: Male
  Weight: 3.1 kg

DRUGS (6)
  1. NEVIRAPINE [Suspect]
     Indication: ACQUIRED IMMUNODEFICIENCY SYNDROME
     Dosage: COURSE  +  ORAL?06/10/2010
     Route: 048
     Dates: start: 20100610
  2. RALTEGRAVIR  (ISENTRESS,  RAL) [Concomitant]
  3. ZIDOVUDINE [Concomitant]
  4. LAMIVUDINE [Concomitant]
  5. LOPINAVIR + RITONAVIR (KALETRA,  ALUVIA,  LPV / R) [Concomitant]
  6. TENOFOVIR  DISOPROXIL  FUMARATE  (HETERO) [Concomitant]

REACTIONS (2)
  - Maternal drugs affecting foetus [None]
  - Volvulus [None]
